FAERS Safety Report 10071828 (Version 1)
Quarter: 2014Q2

REPORT INFORMATION
  Report Type: Spontaneous
  Country: FR (occurrence: FR)
  Receive Date: 20140411
  Receipt Date: 20140411
  Transmission Date: 20141212
  Serious: Yes (Other)
  Sender: FDA-Public Use
  Company Number: FR-JNJFOC-20140319143

PATIENT
  Age: 48 Year
  Sex: Female

DRUGS (4)
  1. CAELYX [Suspect]
     Indication: BREAST CANCER
     Route: 042
     Dates: start: 20140220, end: 20140220
  2. XGEVA [Concomitant]
     Route: 065
  3. THYROZOL [Concomitant]
     Route: 065
  4. CARDENSIEL [Concomitant]
     Route: 065

REACTIONS (5)
  - Infusion related reaction [Recovered/Resolved]
  - Respiratory disorder [Recovered/Resolved]
  - Hypersensitivity [Recovered/Resolved]
  - Rash [Recovered/Resolved]
  - Back pain [Recovered/Resolved]
